FAERS Safety Report 6440322-6 (Version None)
Quarter: 2009Q4

REPORT INFORMATION
  Report Type: 
  Country: None (occurrence: None)
  Receive Date: 20091113
  Receipt Date: 20091110
  Transmission Date: 20100525
  Serious: No
  Sender: FDA-Public Use
  Company Number: US-ROXANE LABORATORIES, INC.-2009-RO-01018RO

PATIENT
  Sex: Male
  Weight: 79 kg

DRUGS (6)
  1. CLOTRIMAZOLE [Suspect]
     Indication: CANDIDIASIS
     Dosage: 50 MG
     Route: 048
     Dates: start: 20090604
  2. ARTHRITIS PILL [Concomitant]
  3. PROSTATE PILL [Concomitant]
  4. PREVACID [Concomitant]
     Indication: DYSPHAGIA
  5. ASPIRIN [Concomitant]
  6. ADVIL [Concomitant]

REACTIONS (7)
  - AGEUSIA [None]
  - APTYALISM [None]
  - DIZZINESS [None]
  - DRUG INEFFECTIVE [None]
  - OEDEMA MOUTH [None]
  - ORAL DISCOMFORT [None]
  - SWOLLEN TONGUE [None]
